FAERS Safety Report 13287853 (Version 17)
Quarter: 2023Q4

REPORT INFORMATION
  Report Type: Spontaneous
  Country: US (occurrence: US)
  Receive Date: 20170302
  Receipt Date: 20231219
  Transmission Date: 20240110
  Serious: Yes (Other)
  Sender: FDA-Public Use
  Company Number: US-PFIZER INC-2016570442

PATIENT
  Age: 17 Year
  Sex: Male
  Weight: 59 kg

DRUGS (6)
  1. BENEFIX [Suspect]
     Active Substance: COAGULATION FACTOR IX RECOMBINANT HUMAN\ISOPROPYL ALCOHOL
     Indication: Factor IX deficiency
     Dosage: 4000 IU, AS NEEDED
     Route: 040
     Dates: start: 201612
  2. BENEFIX [Suspect]
     Active Substance: COAGULATION FACTOR IX RECOMBINANT HUMAN\ISOPROPYL ALCOHOL
     Indication: Prophylaxis
     Dosage: 2000 IU, AS NEEDED TWICE A WEEK
     Route: 042
     Dates: start: 201612
  3. BENEFIX [Suspect]
     Active Substance: COAGULATION FACTOR IX RECOMBINANT HUMAN\ISOPROPYL ALCOHOL
     Indication: Haemorrhage
     Dosage: INFUSE 3000 UNITS PLUS MINUS 10% TWICE WEEKLY PROPHYLAXIS IV
     Route: 042
  4. BENEFIX [Suspect]
     Active Substance: COAGULATION FACTOR IX RECOMBINANT HUMAN\ISOPROPYL ALCOHOL
     Dosage: AS NEEDED (INFUSE 4000 UNITS PLUS MINUS 10% PRN BLEEDING)
  5. BENEFIX [Suspect]
     Active Substance: COAGULATION FACTOR IX RECOMBINANT HUMAN\ISOPROPYL ALCOHOL
     Dosage: INFUSE 3000 UNITS +/-.10% INTO VEIN THREE TIMES WEEKLY FOR PROPHYLAXIS
     Route: 042
     Dates: start: 20221121
  6. BENEFIX [Suspect]
     Active Substance: COAGULATION FACTOR IX RECOMBINANT HUMAN\ISOPROPYL ALCOHOL
     Dosage: INFUSE 6000 UNITS +/- 10% PRN FOR MAJOR BLEED
     Route: 042

REACTIONS (7)
  - Haemorrhage [Not Recovered/Not Resolved]
  - Haemarthrosis [Unknown]
  - Joint swelling [Not Recovered/Not Resolved]
  - Gait inability [Unknown]
  - Mobility decreased [Unknown]
  - Eating disorder [Unknown]
  - Product dose omission issue [Not Recovered/Not Resolved]

NARRATIVE: CASE EVENT DATE: 20170220
